FAERS Safety Report 9231529 (Version 2)
Quarter: 2013Q2

REPORT INFORMATION
  Report Type: Report from Study
  Country: MY (occurrence: MY)
  Receive Date: 20130415
  Receipt Date: 20130426
  Transmission Date: 20140414
  Serious: Yes (Death, Hospitalization)
  Sender: FDA-Public Use
  Company Number: MY-GLAXOSMITHKLINE-B0883139A

PATIENT
  Age: 38 Year
  Sex: Female
  Weight: 84 kg

DRUGS (1)
  1. LAPATINIB [Suspect]
     Indication: BREAST CANCER
     Dosage: 1000MG PER DAY
     Route: 048
     Dates: start: 20111119

REACTIONS (1)
  - Dyspnoea [Fatal]
